FAERS Safety Report 5697414-9 (Version None)
Quarter: 2008Q2

REPORT INFORMATION
  Report Type: 
  Country: None (occurrence: None)
  Receive Date: 20080407
  Receipt Date: 20080403
  Transmission Date: 20081010
  Serious: Yes (Death, Other)
  Sender: FDA-Public Use
  Company Number: PHBS2008FI03639

PATIENT
  Age: 57 Year
  Sex: Female

DRUGS (8)
  1. REMICADE [Suspect]
     Dosage: 200 MG, UNK
     Dates: start: 20001102, end: 20010212
  2. REUMACON [Suspect]
     Dosage: 300 MG/D
  3. PREDNISONE [Concomitant]
     Dosage: 5 MG/D
  4. INDOMETIN [Concomitant]
     Dosage: 50 MG/D
  5. RANIMEX [Concomitant]
     Dosage: 300 MG/D
  6. DIDRONATE [Concomitant]
     Dosage: 400 MG/D FOR 2 WK EVERY 3 MTH
  7. CALCIUM SANDOZ [Concomitant]
     Dosage: 1000 MG/D
  8. SANDIMMUNE [Suspect]
     Indication: RHEUMATOID ARTHRITIS
     Dosage: 100 MG/D
     Route: 048

REACTIONS (4)
  - CEREBRAL HAEMORRHAGE [None]
  - HYPERTENSION [None]
  - SURGERY [None]
  - ULCER [None]
